FAERS Safety Report 10785500 (Version 1)
Quarter: 2015Q1

REPORT INFORMATION
  Report Type: Spontaneous
  Country: US (occurrence: None)
  Receive Date: 20150210
  Receipt Date: 20150210
  Transmission Date: 20150721
  Serious: Yes (Hospitalization)
  Sender: FDA-Public Use
  Company Number: None

PATIENT
  Age: 70 Year
  Sex: Male
  Weight: 109.9 kg

DRUGS (3)
  1. CARBOPLATIN. [Suspect]
     Active Substance: CARBOPLATIN
     Dates: end: 20140916
  2. TAXOL [Suspect]
     Active Substance: PACLITAXEL
     Dates: end: 20140916
  3. BEVACIZUMAB (RHUMAB VEGF) [Suspect]
     Active Substance: BEVACIZUMAB
     Dates: end: 20140916

REACTIONS (5)
  - Haemoptysis [None]
  - Exsanguination [None]
  - General physical health deterioration [None]
  - Haematemesis [None]
  - Pulmonary arteriovenous fistula [None]

NARRATIVE: CASE EVENT DATE: 20141006
